FAERS Safety Report 7197939-3 (Version None)
Quarter: 2010Q4

REPORT INFORMATION
  Report Type: 
  Country: None (occurrence: None)
  Receive Date: 20101227
  Receipt Date: 20101215
  Transmission Date: 20110411
  Serious: Yes (Death, Other)
  Sender: FDA-Public Use
  Company Number: JP-ROCHE-744864

PATIENT
  Sex: Male
  Weight: 40 kg

DRUGS (5)
  1. AVASTIN [Suspect]
     Indication: ADENOSQUAMOUS CELL LUNG CANCER
     Route: 041
     Dates: start: 20101028, end: 20101028
  2. CARBOPLATIN [Suspect]
     Indication: ADENOSQUAMOUS CELL LUNG CANCER
     Dosage: NOTE: DOSAGE IS UNCERTAIN
     Route: 041
     Dates: start: 20101028, end: 20101028
  3. ALIMTA [Suspect]
     Indication: ADENOSQUAMOUS CELL LUNG CANCER
     Dosage: NOTE: DOSAGE IS UNCERTAIN.
     Route: 041
     Dates: start: 20101028, end: 20101028
  4. KYTRIL [Concomitant]
     Route: 041
     Dates: start: 20101028, end: 20101028
  5. DECADRON [Concomitant]
     Route: 041
     Dates: start: 20101028, end: 20101028

REACTIONS (7)
  - DISSEMINATED INTRAVASCULAR COAGULATION [None]
  - ENTEROCOLITIS INFECTIOUS [None]
  - MULTI-ORGAN FAILURE [None]
  - NEUTROPHIL COUNT DECREASED [None]
  - RENAL FAILURE ACUTE [None]
  - SEPSIS [None]
  - SEPTIC SHOCK [None]
